FAERS Safety Report 6987541-8 (Version None)
Quarter: 2010Q3

REPORT INFORMATION
  Report Type: 
  Country: None (occurrence: None)
  Receive Date: 20100916
  Receipt Date: 20100819
  Transmission Date: 20110219
  Serious: No
  Sender: FDA-Public Use
  Company Number: US-PFIZER INC-2010099707

PATIENT
  Sex: Female
  Weight: 50 kg

DRUGS (7)
  1. XALATAN [Suspect]
     Indication: GLAUCOMA
     Dosage: UNK, DAILY
     Route: 047
     Dates: start: 20030101
  2. XALATAN [Suspect]
     Indication: INTRAOCULAR PRESSURE INCREASED
  3. TIMOLOL [Concomitant]
     Dosage: UNK
  4. AZOPT [Concomitant]
     Dosage: UNK
  5. BRIMONIDINE [Concomitant]
     Dosage: UNK
  6. ATENOLOL [Concomitant]
     Indication: HYPERTENSION
     Dosage: 25 MG, DAILY
  7. ASPIRIN [Concomitant]
     Dosage: UNK

REACTIONS (1)
  - EYE IRRITATION [None]
